FAERS Safety Report 17951050 (Version 1)
Quarter: 2020Q2

REPORT INFORMATION
  Report Type: Spontaneous
  Country: IN (occurrence: IN)
  Receive Date: 20200626
  Receipt Date: 20200626
  Transmission Date: 20200714
  Serious: Yes (Other)
  Sender: FDA-Public Use
  Company Number: IN-ALLERGAN-2024680US

PATIENT
  Sex: Female

DRUGS (1)
  1. PODOFILOX UNK [Suspect]
     Active Substance: PODOFILOX
     Indication: LYMPHANGIOMA
     Dosage: ONCE EVERY 3 WEEKS

REACTIONS (2)
  - Drug ineffective for unapproved indication [Unknown]
  - Cellulitis [Unknown]
